FAERS Safety Report 7592234 (Version 4)
Quarter: 2019Q1

REPORT INFORMATION
  Report Type: Spontaneous
  Country: CA (occurrence: CA)
  Receive Date: 20100917
  Receipt Date: 20190217
  Transmission Date: 20190418
  Serious: Yes (Hospitalization)
  Sender: FDA-Public Use
  Company Number: CA-JNJFOC-20100904131

PATIENT
  Age: 35 Year
  Sex: Male
  Weight: 63.5 kg

DRUGS (8)
  1. SUPRAX [Suspect]
     Active Substance: CEFIXIME
     Indication: PYREXIA
     Dates: start: 20100801
  2. TYLENOL EXTRA STRENGTH [Suspect]
     Active Substance: ACETAMINOPHEN
     Indication: HEADACHE
     Route: 048
  3. ADVIL [Concomitant]
     Active Substance: IBUPROFEN
     Indication: HEADACHE
  4. SULFAMETHOXAZOLE/TRIMETHOPRIM [Suspect]
     Active Substance: SULFAMETHOXAZOLE\TRIMETHOPRIM
     Indication: HEADACHE
     Route: 048
     Dates: start: 20100901
  5. TYLENOL EXTRA STRENGTH [Suspect]
     Active Substance: ACETAMINOPHEN
     Indication: PYREXIA
     Route: 048
  6. ADVIL [Concomitant]
     Active Substance: IBUPROFEN
     Indication: PYREXIA
  7. SUPRAX [Suspect]
     Active Substance: CEFIXIME
     Indication: HEADACHE
     Dates: start: 20100801
  8. SULFAMETHOXAZOLE/TRIMETHOPRIM [Suspect]
     Active Substance: SULFAMETHOXAZOLE\TRIMETHOPRIM
     Indication: PYREXIA
     Route: 048
     Dates: start: 20100901

REACTIONS (2)
  - Liver disorder [Not Recovered/Not Resolved]
  - Inappropriate schedule of product administration [Unknown]
